FAERS Safety Report 8587382-4 (Version None)
Quarter: 2012Q3

REPORT INFORMATION
  Report Type: 
  Country: None (occurrence: None)
  Receive Date: 20120810
  Receipt Date: 20111103
  Transmission Date: 20120928
  Serious: No
  Sender: FDA-Public Use
  Company Number: US-ASTRAZENECA-2011SE66892

PATIENT

DRUGS (3)
  1. CRESTOR [Concomitant]
     Route: 048
  2. ARIMIDEX [Suspect]
     Route: 048
  3. IMITREX [Concomitant]

REACTIONS (5)
  - HEADACHE [None]
  - HOT FLUSH [None]
  - PALPITATIONS [None]
  - DRUG HYPERSENSITIVITY [None]
  - ARTHRALGIA [None]
